FAERS Safety Report 4339532-3 (Version None)
Quarter: 2004Q2

REPORT INFORMATION
  Report Type: 
  Country: None (occurrence: None)
  Receive Date: 20040415
  Receipt Date: 20040303
  Transmission Date: 20050107
  Serious: Yes (Hospitalization)
  Sender: FDA-Public Use
  Company Number: IL-BRISTOL-MYERS SQUIBB COMPANY-12523866

PATIENT
  Age: 57 Year
  Sex: Male
  Weight: 94 kg

DRUGS (8)
  1. WARFARIN SODIUM [Suspect]
     Dates: start: 20040209
  2. ATENOLOL [Suspect]
  3. TEDISAMIL [Suspect]
  4. PROPAFENONE HYDROCHLORIDE [Suspect]
  5. MIDAZOLAM HCL [Suspect]
  6. PROPOFOL [Suspect]
  7. FUROSEMIDE [Concomitant]
  8. PRAMIN [Concomitant]

REACTIONS (2)
  - HYPOTENSION [None]
  - RENAL FAILURE ACUTE [None]
